FAERS Safety Report 20001844 (Version 2)
Quarter: 2021Q4

REPORT INFORMATION
  Report Type: Spontaneous
  Country: GB (occurrence: GB)
  Receive Date: 20211027
  Receipt Date: 20211203
  Transmission Date: 20220303
  Serious: Yes (Death)
  Sender: FDA-Public Use
  Company Number: GB-AMRYT PHARMACEUTICALS DAC-AEGR005303

PATIENT

DRUGS (1)
  1. METRELEPTIN [Suspect]
     Active Substance: METRELEPTIN
     Indication: Lipodystrophy acquired
     Dosage: 5.8 MILLIGRAM, QD
     Route: 058
     Dates: start: 20190403

REACTIONS (1)
  - Death [Fatal]
